FAERS Safety Report 7933574-4 (Version None)
Quarter: 2011Q4

REPORT INFORMATION
  Report Type: 
  Country: None (occurrence: None)
  Receive Date: 20111122
  Receipt Date: 20111109
  Transmission Date: 20120403
  Serious: No
  Sender: FDA-Public Use
  Company Number: US-BAYER-2011-028013

PATIENT
  Sex: Female
  Weight: 95.238 kg

DRUGS (3)
  1. ALEVE (CAPLET) [Suspect]
     Indication: ARTHRITIS
     Dosage: DAILY DOSE 2 DF
     Route: 048
     Dates: start: 20100101
  2. ASPIRIN [Concomitant]
  3. ALEVE (CAPLET) [Suspect]
     Dosage: 2 TAB ONCE DAILY WITH FOOD
     Dates: start: 20111020

REACTIONS (1)
  - NO ADVERSE EVENT [None]
